FAERS Safety Report 5265025-5 (Version None)
Quarter: 2007Q1

REPORT INFORMATION
  Report Type: 
  Country: None (occurrence: None)
  Receive Date: 20061122
  Receipt Date: 20060823
  Transmission Date: 20070707
  Serious: Yes (Other)
  Sender: FDA-Public Use
  Company Number: US-JNJFOC-20060705092

PATIENT
  Age: 13 Year
  Sex: Male
  Weight: 48.9885 kg

DRUGS (4)
  1. RISPERDAL [Suspect]
     Indication: BIPOLAR I DISORDER
     Dosage: 25 MG 1 IN 4 WEEK, INTRA-MUSCULAR
     Route: 030
     Dates: start: 20060302, end: 20060714
  2. RISPERDAL [Suspect]
     Indication: BIPOLAR I DISORDER
     Dosage: ORAL
     Route: 048
  3. DEPAKOTE [Concomitant]
  4. CLONIDINE [Concomitant]

REACTIONS (1)
  - PRIAPISM [None]
